FAERS Safety Report 24543635 (Version 1)
Quarter: 2024Q4

REPORT INFORMATION
  Report Type: Spontaneous
  Country: IT (occurrence: IT)
  Receive Date: 20241024
  Receipt Date: 20241024
  Transmission Date: 20250115
  Serious: Yes (Other)
  Sender: JOHNSON AND JOHNSON
  Company Number: IT-JNJFOC-20241056326

PATIENT
  Age: 48 Year
  Sex: Male
  Weight: 55 kg

DRUGS (2)
  1. TOPAMAX [Suspect]
     Active Substance: TOPIRAMATE
     Indication: Product used for unknown indication
     Route: 048
  2. RIVOTRIL [Suspect]
     Active Substance: CLONAZEPAM
     Indication: Product used for unknown indication
     Route: 065

REACTIONS (5)
  - Coma [Unknown]
  - Self-destructive behaviour [Unknown]
  - Metabolic acidosis [Unknown]
  - Respiratory acidosis [Unknown]
  - Hypotension [Unknown]
